FAERS Safety Report 25447695 (Version 1)
Quarter: 2025Q2

REPORT INFORMATION
  Report Type: Spontaneous
  Country: US (occurrence: US)
  Receive Date: 20250617
  Receipt Date: 20250617
  Transmission Date: 20250716
  Serious: Yes (Hospitalization)
  Sender: SANOFI AVENTIS
  Company Number: US-SA-2025SA170282

PATIENT
  Age: 72 Year
  Sex: Female
  Weight: 51.25 kg

DRUGS (11)
  1. DUPIXENT [Suspect]
     Active Substance: DUPILUMAB
     Dosage: 300 MG, QOW
     Route: 058
  2. OXYCODONE [Concomitant]
     Active Substance: OXYCODONE
  3. BUDESONIDE\FORMOTEROL [Concomitant]
     Active Substance: BUDESONIDE\FORMOTEROL
  4. PREDNISONE [Concomitant]
     Active Substance: PREDNISONE
  5. METOPROLOL SUCCINATE [Concomitant]
     Active Substance: METOPROLOL SUCCINATE
  6. ESOMEPRAZOLE MAGNESIUM [Concomitant]
     Active Substance: ESOMEPRAZOLE MAGNESIUM
  7. BREZTRI [Concomitant]
     Active Substance: BUDESONIDE\FORMOTEROL\GLYCOPYRROLATE
  8. ESTRADIOL [Concomitant]
     Active Substance: ESTRADIOL
  9. ALPRAZOLAM [Concomitant]
     Active Substance: ALPRAZOLAM
  10. SYNTHROID [Concomitant]
     Active Substance: LEVOTHYROXINE SODIUM
  11. DOXEPIN [Concomitant]
     Active Substance: DOXEPIN

REACTIONS (3)
  - Hospitalisation [Unknown]
  - Lung disorder [Unknown]
  - Cardiac disorder [Unknown]
